FAERS Safety Report 16349266 (Version 1)
Quarter: 2019Q2

REPORT INFORMATION
  Report Type: Spontaneous
  Country: US (occurrence: US)
  Receive Date: 20190523
  Receipt Date: 20190523
  Transmission Date: 20190711
  Serious: Yes (Disabling, Other)
  Sender: FDA-Public Use
  Company Number: US-SA-2019SA139662

PATIENT
  Age: 72 Year
  Sex: Male

DRUGS (1)
  1. GOLD BOND ORIGINAL STRENGTH POWDER [Suspect]
     Active Substance: MENTHOL\ZINC OXIDE

REACTIONS (6)
  - Injury [Unknown]
  - Impaired work ability [Unknown]
  - Pain [Unknown]
  - Lung neoplasm malignant [Unknown]
  - Exposure to chemical pollution [Unknown]
  - Tension [Unknown]

NARRATIVE: CASE EVENT DATE: 20160609
